FAERS Safety Report 12678761 (Version 1)
Quarter: 2016Q3

REPORT INFORMATION
  Report Type: Spontaneous
  Country: US (occurrence: US)
  Receive Date: 20160824
  Receipt Date: 20160824
  Transmission Date: 20161109
  Serious: Yes (Other)
  Sender: FDA-Public Use
  Company Number: US-BEH-2016072729

PATIENT
  Age: 35 Year
  Sex: Female

DRUGS (2)
  1. BERINERT [Suspect]
     Active Substance: HUMAN C1-ESTERASE INHIBITOR
     Indication: HEREDITARY ANGIOEDEMA
     Dosage: 2000 IU, UNK (3 TIMES A WEEK)
     Route: 042
     Dates: start: 201408
  2. RUCONEST [Concomitant]
     Active Substance: HUMAN C1-ESTERASE INHIBITOR

REACTIONS (14)
  - Pyrexia [Unknown]
  - Local swelling [Unknown]
  - Abdominal distension [Unknown]
  - Nausea [Unknown]
  - Rash [Unknown]
  - Local swelling [Unknown]
  - Swelling [Unknown]
  - Pain [Unknown]
  - Swelling face [Unknown]
  - Diarrhoea [Unknown]
  - Infection [Unknown]
  - Abdominal distension [Unknown]
  - Joint swelling [Unknown]
  - Vomiting [Unknown]

NARRATIVE: CASE EVENT DATE: 201607
